FAERS Safety Report 10736787 (Version 1)
Quarter: 2015Q1

REPORT INFORMATION
  Report Type: Spontaneous
  Country: US (occurrence: None)
  Receive Date: 20150122
  Receipt Date: 20150122
  Transmission Date: 20150721
  Serious: Yes (Other)
  Sender: FDA-Public Use
  Company Number: None

PATIENT
  Age: 65 Year
  Sex: Male
  Weight: 129.28 kg

DRUGS (5)
  1. IBUPROFEN. [Suspect]
     Active Substance: IBUPROFEN
     Indication: MYOSITIS
     Dosage: 1 TABLET 1 TABLET TAKEN ONCE BY MOUTH WITH BREAKFAST
     Route: 048
     Dates: start: 20141130, end: 20141130
  2. WARFARIN [Concomitant]
     Active Substance: WARFARIN
  3. METOPROLOL TARTRATE. [Concomitant]
     Active Substance: METOPROLOL TARTRATE
  4. PERCOCET/ACETOMETAPHIN [Concomitant]
  5. METHYLPREDNISOLONE. [Concomitant]
     Active Substance: METHYLPREDNISOLONE

REACTIONS (3)
  - Blood urine present [None]
  - Urine odour abnormal [None]
  - Urine output decreased [None]

NARRATIVE: CASE EVENT DATE: 20141130
